FAERS Safety Report 9434408 (Version 1)
Quarter: 2013Q3

REPORT INFORMATION
  Report Type: Spontaneous
  Country: US (occurrence: None)
  Receive Date: 20130731
  Receipt Date: 20130731
  Transmission Date: 20140515
  Serious: No
  Sender: FDA-Public Use
  Company Number: None

PATIENT
  Age: 63 None
  Sex: Female

DRUGS (5)
  1. ALENDRONATE [Suspect]
     Indication: OSTEOPOROSIS
     Dosage: 4, 1 TAB WEEKLY ORAL X 2 MONTHS (8 TABLETS) TOTAL
     Route: 048
     Dates: start: 20130131, end: 20130324
  2. PRAVASTATIN [Concomitant]
  3. OMEGA 3 [Concomitant]
  4. CALCIUM D [Concomitant]
  5. MULTI VITAMIN [Concomitant]

REACTIONS (4)
  - Ageusia [None]
  - Anosmia [None]
  - Dysgeusia [None]
  - Parosmia [None]
